FAERS Safety Report 4545481-8 (Version None)
Quarter: 2005Q1

REPORT INFORMATION
  Report Type: 
  Country: None (occurrence: None)
  Receive Date: 20050105
  Receipt Date: 20040617
  Transmission Date: 20050727
  Serious: Yes (Other)
  Sender: FDA-Public Use
  Company Number: FR-MERCK-0406FRA00096

PATIENT
  Age: 55 Year
  Sex: Female

DRUGS (4)
  1. ZOCOR [Suspect]
     Indication: HYPERCHOLESTEROLAEMIA
     Route: 048
     Dates: start: 20040527
  2. PROPRANOLOL HYDROCHLORIDE [Concomitant]
     Route: 048
  3. ESTROGENS (UNSPECIFIED) [Concomitant]
     Indication: POSTMENOPAUSE
     Route: 061
  4. PROGESTERONE [Concomitant]
     Indication: POSTMENOPAUSE
     Route: 048

REACTIONS (2)
  - BASEDOW'S DISEASE [None]
  - DYSGEUSIA [None]
